FAERS Safety Report 6055484-2 (Version None)
Quarter: 2009Q1

REPORT INFORMATION
  Report Type: 
  Country: None (occurrence: None)
  Receive Date: 20090128
  Receipt Date: 20090121
  Transmission Date: 20090719
  Serious: Yes (Hospitalization)
  Sender: FDA-Public Use
  Company Number: A0694268A

PATIENT
  Age: 58 Year
  Sex: Male
  Weight: 134.1 kg

DRUGS (8)
  1. AVANDIA [Suspect]
     Dosage: 8MG PER DAY
     Route: 048
     Dates: end: 20071001
  2. METFORMIN HCL [Concomitant]
     Dates: start: 20060101
  3. GLUCOTROL [Concomitant]
     Dates: start: 20060414, end: 20070101
  4. HYDROCHLOROTHIAZIDE [Concomitant]
     Dates: start: 20060701
  5. CLONIDINE [Concomitant]
  6. PLAVIX [Concomitant]
  7. NITROGLYCERIN [Concomitant]
     Dates: start: 20060401
  8. GLUCOPHAGE [Concomitant]

REACTIONS (13)
  - ADVERSE EVENT [None]
  - CARDIOMYOPATHY [None]
  - CEREBRAL ISCHAEMIA [None]
  - CHEST PAIN [None]
  - CORONARY ARTERY DISEASE [None]
  - EMOTIONAL DISTRESS [None]
  - HYPERTENSION [None]
  - INJURY [None]
  - ISCHAEMIC STROKE [None]
  - MYOCARDIAL INFARCTION [None]
  - MYOCARDIAL ISCHAEMIA [None]
  - OEDEMA [None]
  - PAIN [None]
